FAERS Safety Report 13307169 (Version 1)
Quarter: 2017Q1

REPORT INFORMATION
  Report Type: Report from Study
  Country: US (occurrence: US)
  Receive Date: 20170308
  Receipt Date: 20170308
  Transmission Date: 20170428
  Serious: Yes (Other)
  Sender: FDA-Public Use
  Company Number: US-SA-2017SA027205

PATIENT
  Age: 36 Year
  Sex: Male

DRUGS (2)
  1. LEMTRADA [Suspect]
     Active Substance: ALEMTUZUMAB
     Route: 041
     Dates: start: 20170213, end: 20170217
  2. LEMTRADA [Suspect]
     Active Substance: ALEMTUZUMAB
     Route: 041

REACTIONS (6)
  - Pain [Unknown]
  - Pharyngeal hypoaesthesia [Unknown]
  - Hypoaesthesia [Not Recovered/Not Resolved]
  - Walking aid user [Unknown]
  - Pharyngeal paraesthesia [Unknown]
  - Paraesthesia [Not Recovered/Not Resolved]

NARRATIVE: CASE EVENT DATE: 20170213
